FAERS Safety Report 10332840 (Version 3)
Quarter: 2014Q3

REPORT INFORMATION
  Report Type: Spontaneous
  Country: JP (occurrence: JP)
  Receive Date: 20140722
  Receipt Date: 20140820
  Transmission Date: 20150326
  Serious: Yes (Other)
  Sender: FDA-Public Use
  Company Number: JP-009507513-1407JPN008080

PATIENT
  Age: 62 Year
  Sex: Male
  Weight: 64 kg

DRUGS (19)
  1. POTASSIUM CHLORIDE. [Concomitant]
     Active Substance: POTASSIUM CHLORIDE
     Indication: HYPOKALAEMIA
     Dosage: 10 MEQ, QD
     Route: 042
     Dates: start: 20140619, end: 20140627
  2. PARIET [Concomitant]
     Active Substance: RABEPRAZOLE SODIUM
     Indication: PROPHYLAXIS
     Dosage: 10 MG, QD
     Route: 048
     Dates: start: 20131213
  3. GLACTIV [Concomitant]
     Active Substance: SITAGLIPTIN
     Indication: DIABETES MELLITUS
     Dosage: 50 MG, QD
     Route: 048
     Dates: start: 20140417
  4. CALONAL [Concomitant]
     Active Substance: ACETAMINOPHEN
     Indication: ANTIPYRESIS
     Dosage: 600 MG, PRN
     Route: 048
     Dates: start: 20140612, end: 20140622
  5. NEO-MINOPHAGEN C [Concomitant]
     Active Substance: AMMONIUM GLYCYRRHIZATE
     Indication: HEPATIC FUNCTION ABNORMAL
     Dosage: 40 MG, QD
     Route: 042
     Dates: start: 20140621, end: 20140627
  6. LASIX [Concomitant]
     Active Substance: FUROSEMIDE
     Dosage: 20 MG, BID
     Route: 048
     Dates: start: 20140623, end: 20140701
  7. URSO [Concomitant]
     Active Substance: URSODIOL
     Indication: HEPATIC FUNCTION ABNORMAL
     Dosage: 100 MG, TID
     Route: 048
     Dates: start: 20140519, end: 20140701
  8. CANCIDAS [Suspect]
     Active Substance: CASPOFUNGIN ACETATE
     Indication: FEBRILE NEUTROPENIA
     Dosage: 70 MG, QD
     Route: 041
     Dates: start: 20140616, end: 20140616
  9. DENOSINE [Suspect]
     Active Substance: GANCICLOVIR
     Dosage: 300 MG, QD
     Route: 042
     Dates: start: 20140621, end: 20140627
  10. GRAN [Suspect]
     Active Substance: FILGRASTIM
     Indication: NEUTROPENIA
     Dosage: 150 MICROGRAM, QD
     Route: 042
     Dates: start: 20140609, end: 20140618
  11. MEROPEN [Suspect]
     Active Substance: MEROPENEM
     Indication: FEBRILE NEUTROPENIA
     Dosage: 1.0 G, TID
     Route: 042
     Dates: start: 20140621, end: 20140622
  12. ZOSYN [Suspect]
     Active Substance: PIPERACILLIN SODIUM\TAZOBACTAM SODIUM
     Indication: FEBRILE NEUTROPENIA
     Dosage: 4.5 G, QID
     Route: 042
     Dates: start: 20140612, end: 20140617
  13. ZOSYN [Suspect]
     Active Substance: PIPERACILLIN SODIUM\TAZOBACTAM SODIUM
     Dosage: 4.5 G, TID
     Route: 042
     Dates: start: 20140623, end: 20140626
  14. LASIX [Concomitant]
     Active Substance: FUROSEMIDE
     Indication: OEDEMA
     Dosage: 20 MG, QD
     Route: 048
     Dates: start: 20140621, end: 20140622
  15. CANCIDAS [Suspect]
     Active Substance: CASPOFUNGIN ACETATE
     Indication: FEBRILE NEUTROPENIA
     Dosage: 50 MG, QD
     Route: 041
     Dates: start: 20140617, end: 20140625
  16. MAGLAX (MAGNESIUM OXIDE) [Suspect]
     Active Substance: MAGNESIUM OXIDE
     Indication: CONSTIPATION
     Dosage: 660 MG, TID
     Route: 048
     Dates: start: 20131220
  17. HARNAL [Concomitant]
     Active Substance: TAMSULOSIN HYDROCHLORIDE
     Indication: DYSURIA
     Dosage: 0.2 MG, QD
     Route: 048
     Dates: start: 20140621, end: 20140701
  18. ZOSYN [Suspect]
     Active Substance: PIPERACILLIN SODIUM\TAZOBACTAM SODIUM
     Dosage: 4.5 G, TID
     Route: 042
     Dates: start: 20140617, end: 20140621
  19. DENOSINE [Suspect]
     Active Substance: GANCICLOVIR
     Indication: CYTOMEGALOVIRUS CHORIORETINITIS
     Dosage: 300 MG, BID
     Route: 042
     Dates: start: 20140617, end: 20140620

REACTIONS (7)
  - Hepatic function abnormal [Recovered/Resolved]
  - Viral haemorrhagic cystitis [Not Recovered/Not Resolved]
  - Cytomegalovirus chorioretinitis [Recovered/Resolved]
  - Diarrhoea [Recovered/Resolved]
  - Hypokalaemia [Recovered/Resolved]
  - Oedema [Recovered/Resolved]
  - Rash [Recovered/Resolved]

NARRATIVE: CASE EVENT DATE: 20140616
